FAERS Safety Report 9350480 (Version 2)
Quarter: 2013Q3

REPORT INFORMATION
  Report Type: Report from Study
  Country: AU (occurrence: AU)
  Receive Date: 20130617
  Receipt Date: 20130813
  Transmission Date: 20140515
  Serious: Yes (Disabling, Other)
  Sender: FDA-Public Use
  Company Number: AU-ROCHE-1237024

PATIENT
  Age: 65 Year
  Sex: Female

DRUGS (4)
  1. RANIBIZUMAB [Suspect]
     Indication: AGE-RELATED MACULAR DEGENERATION
     Route: 050
     Dates: start: 20120118
  2. RANIBIZUMAB [Suspect]
     Route: 050
     Dates: start: 201203
  3. RANIBIZUMAB [Suspect]
     Route: 050
     Dates: start: 20120606
  4. AVASTIN [Concomitant]
     Indication: AGE-RELATED MACULAR DEGENERATION
     Route: 065
     Dates: start: 20120808

REACTIONS (6)
  - Metamorphopsia [Recovering/Resolving]
  - Inappropriate schedule of drug administration [Unknown]
  - Drug ineffective [Unknown]
  - Vision blurred [Unknown]
  - Cataract [Unknown]
  - Intraocular pressure increased [Recovering/Resolving]
